FAERS Safety Report 6527893-6 (Version None)
Quarter: 2010Q1

REPORT INFORMATION
  Report Type: 
  Country: None (occurrence: None)
  Receive Date: 20100106
  Receipt Date: 20091231
  Transmission Date: 20100710
  Serious: Yes (Hospitalization)
  Sender: FDA-Public Use
  Company Number: IT-B.I. PHARMACEUTICALS,INC./RIDGEFIELD-2009-IT-00291IT

PATIENT
  Sex: Female

DRUGS (2)
  1. PERSANTINE [Suspect]
     Indication: CARDIAC FAILURE
     Dosage: 300 MG
     Route: 048
     Dates: start: 20090505, end: 20090508
  2. DILATREND [Suspect]
     Indication: CARDIAC FAILURE
     Dosage: 12.5 MG
     Route: 048
     Dates: start: 20090505, end: 20090508

REACTIONS (3)
  - ATRIAL FIBRILLATION [None]
  - CARDIAC FAILURE [None]
  - LUNG INDURATION [None]
